FAERS Safety Report 7447155-2 (Version None)
Quarter: 2011Q2

REPORT INFORMATION
  Report Type: 
  Country: None (occurrence: None)
  Receive Date: 20110429
  Receipt Date: 20101130
  Transmission Date: 20111010
  Serious: No
  Sender: FDA-Public Use
  Company Number: US-ASTRAZENECA-2010SE56795

PATIENT
  Age: 56 Year
  Sex: Female
  Weight: 90.7 kg

DRUGS (6)
  1. NEXIUM [Suspect]
     Dosage: ONCE A DAY
     Route: 048
  2. PRILOSEC OTC [Suspect]
     Indication: ABDOMINAL DISCOMFORT
     Route: 048
  3. ZALAXOPINE [Concomitant]
  4. SOMA [Concomitant]
  5. LOVASTATIN [Concomitant]
  6. DEPAKOTE [Concomitant]

REACTIONS (2)
  - WRONG DRUG ADMINISTERED [None]
  - DRUG INEFFECTIVE [None]
